FAERS Safety Report 13561636 (Version 1)
Quarter: 2017Q2

REPORT INFORMATION
  Report Type: Spontaneous
  Country: US (occurrence: US)
  Receive Date: 20170518
  Receipt Date: 20170518
  Transmission Date: 20170830
  Serious: Yes (Disabling)
  Sender: FDA-Public Use
  Company Number: None

PATIENT
  Age: 50 Year
  Sex: Female
  Weight: 63 kg

DRUGS (2)
  1. LEVOFLOXACIN 500 MG TABLET [Suspect]
     Active Substance: LEVOFLOXACIN
     Indication: ACUTE SINUSITIS
     Dosage: ?          QUANTITY:1 TABLET(S);?
     Route: 048
     Dates: start: 20160112, end: 20160122
  2. METRONIDAZOLE. [Concomitant]
     Active Substance: METRONIDAZOLE

REACTIONS (4)
  - Condition aggravated [None]
  - Tendon pain [None]
  - Fear [None]
  - Epicondylitis [None]

NARRATIVE: CASE EVENT DATE: 20160201
